FAERS Safety Report 7850379-3 (Version None)
Quarter: 2011Q4

REPORT INFORMATION
  Report Type: 
  Country: None (occurrence: None)
  Receive Date: 20111024
  Receipt Date: 20111007
  Transmission Date: 20120403
  Serious: Yes (Other)
  Sender: FDA-Public Use
  Company Number: 1000024769

PATIENT
  Age: 2 Month
  Sex: Female

DRUGS (1)
  1. ESCITALOPRAM OXALATE [Suspect]
     Dosage: 10 MG (10 MG, 1 IN 1 D), TRANSMAMMARY
     Route: 063

REACTIONS (2)
  - RESTLESSNESS [None]
  - MATERNAL DRUGS AFFECTING FOETUS [None]
